FAERS Safety Report 5169755-5 (Version None)
Quarter: 2006Q4

REPORT INFORMATION
  Report Type: 
  Country: None (occurrence: None)
  Receive Date: 20061212
  Receipt Date: 20061201
  Transmission Date: 20070319
  Serious: Yes (Hospitalization, Other)
  Sender: FDA-Public Use
  Company Number: PHEH2006US14796

PATIENT
  Age: 62 Year
  Sex: Female

DRUGS (3)
  1. CELLCEPT [Concomitant]
  2. ACTIVASE [Suspect]
  3. NEORAL [Suspect]
     Indication: RENAL TRANSPLANT
     Dosage: 175 MG, BID
     Route: 048

REACTIONS (4)
  - CEREBROVASCULAR ACCIDENT [None]
  - DYSPHAGIA [None]
  - INTUBATION [None]
  - TONGUE OEDEMA [None]
